FAERS Safety Report 8183751-5 (Version None)
Quarter: 2012Q1

REPORT INFORMATION
  Report Type: 
  Country: None (occurrence: None)
  Receive Date: 20120305
  Receipt Date: 20120301
  Transmission Date: 20120608
  Serious: Yes (Death)
  Sender: FDA-Public Use
  Company Number: PHHY2012JP002140

PATIENT

DRUGS (2)
  1. NEORAL [Suspect]
     Dosage: 100 MG, DAILY
     Route: 048
  2. NEORAL [Suspect]
     Indication: INTERSTITIAL LUNG DISEASE
     Dosage: 150 MG, DAILY
     Route: 048
     Dates: start: 20111201

REACTIONS (2)
  - IMMUNOSUPPRESSANT DRUG LEVEL DECREASED [None]
  - PLATELET COUNT DECREASED [None]
